FAERS Safety Report 4514688-8 (Version None)
Quarter: 2004Q4

REPORT INFORMATION
  Report Type: 
  Country: None (occurrence: None)
  Receive Date: 20041126
  Receipt Date: 20041122
  Transmission Date: 20050328
  Serious: Yes (Hospitalization, Disabling)
  Sender: FDA-Public Use
  Company Number: TCI2004A04076

PATIENT
  Age: 48 Year
  Sex: Female

DRUGS (6)
  1. TAKEPRON OD TABLETS 30 (LANSOPRAZOLE) (TABLETS) [Suspect]
     Indication: GASTRIC ULCER
     Dosage: 30 MG (30 MG, 1 IN 1 D)
     Route: 048
     Dates: start: 20040526, end: 20040622
  2. ARAVA [Suspect]
     Indication: RHEUMATOID ARTHRITIS
     Dosage: SEE IMAGE
     Route: 048
     Dates: start: 20040402, end: 20040403
  3. ARAVA [Suspect]
     Indication: RHEUMATOID ARTHRITIS
     Dosage: SEE IMAGE
     Route: 048
     Dates: start: 20040404, end: 20040707
  4. OSUTELUC (ETODOLAC) TABLETS [Concomitant]
  5. SELBEX (TEPRENONE) FINE GRANULES [Concomitant]
  6. PREDNISOLONE [Concomitant]

REACTIONS (10)
  - ASCITES [None]
  - ATYPICAL MYCOBACTERIAL INFECTION [None]
  - BLOOD CHOLESTEROL INCREASED [None]
  - DECREASED APPETITE [None]
  - DRUG INEFFECTIVE [None]
  - GLOMERULOSCLEROSIS [None]
  - HAEMODIALYSIS [None]
  - NEPHROTIC SYNDROME [None]
  - PLEURAL EFFUSION [None]
  - PSEUDOMONAS INFECTION [None]
